FAERS Safety Report 5442228-8 (Version None)
Quarter: 2007Q3

REPORT INFORMATION
  Report Type: 
  Country: None (occurrence: None)
  Receive Date: 20070731
  Receipt Date: 20070616
  Transmission Date: 20080115
  Serious: No
  Sender: FDA-Public Use
  Company Number: US200706003955

PATIENT
  Age: 62 Year
  Sex: Male
  Weight: 82.5 kg

DRUGS (2)
  1. BYETTA [Suspect]
     Dosage: 5 UG, DAILY (1/D), SUBCUTANEOUS
     Route: 058
     Dates: start: 20070607
  2. ASPIRIN [Concomitant]

REACTIONS (2)
  - CONTUSION [None]
  - INJECTION SITE HAEMORRHAGE [None]
